FAERS Safety Report 17355010 (Version 1)
Quarter: 2020Q1

REPORT INFORMATION
  Report Type: Spontaneous
  Country: JP (occurrence: JP)
  Receive Date: 20200131
  Receipt Date: 20200131
  Transmission Date: 20200409
  Serious: Yes (Death, Other)
  Sender: FDA-Public Use
  Company Number: NVSJ2020JP001351

PATIENT
  Age: 86 Year
  Sex: Male

DRUGS (13)
  1. DABRAFENIB [Suspect]
     Active Substance: DABRAFENIB
     Dosage: UNK, QW2
     Route: 048
     Dates: start: 20180717
  2. DABRAFENIB [Suspect]
     Active Substance: DABRAFENIB
     Dosage: UNK, QW2
     Route: 048
     Dates: start: 20190611
  3. TRAMETINIB [Suspect]
     Active Substance: TRAMETINIB
     Indication: MALIGNANT MELANOMA STAGE IV
     Dosage: UNK
     Route: 048
     Dates: start: 20180623
  4. TRAMETINIB [Suspect]
     Active Substance: TRAMETINIB
     Dosage: UNK, QW2
     Route: 048
     Dates: start: 20190611
  5. TRAMETINIB [Suspect]
     Active Substance: TRAMETINIB
     Dosage: UNK, QW2
     Route: 048
     Dates: start: 20181120
  6. PREDNISOLONE. [Concomitant]
     Active Substance: PREDNISOLONE
     Dosage: 5 MG
     Route: 048
     Dates: start: 20190108
  7. DABRAFENIB [Suspect]
     Active Substance: DABRAFENIB
     Indication: MALIGNANT MELANOMA STAGE IV
     Dosage: UNK
     Route: 048
     Dates: start: 20180623
  8. PREDNISOLONE. [Concomitant]
     Active Substance: PREDNISOLONE
     Indication: PRODUCT USED FOR UNKNOWN INDICATION
     Dosage: 5 MG
     Route: 048
     Dates: start: 20181120
  9. DABRAFENIB [Suspect]
     Active Substance: DABRAFENIB
     Dosage: UNK, QW2
     Route: 048
     Dates: start: 20181120
  10. DABRAFENIB [Suspect]
     Active Substance: DABRAFENIB
     Dosage: UNK, QW2
     Route: 048
     Dates: start: 20190108
  11. TRAMETINIB [Suspect]
     Active Substance: TRAMETINIB
     Dosage: UNK, QW2
     Route: 048
     Dates: start: 20180717
  12. TRAMETINIB [Suspect]
     Active Substance: TRAMETINIB
     Dosage: UNK UNK, QW2
     Route: 048
     Dates: start: 20190108
  13. PREDNISOLONE. [Concomitant]
     Active Substance: PREDNISOLONE
     Dosage: 5 MG
     Route: 048
     Dates: start: 20190611

REACTIONS (5)
  - Pyrexia [Unknown]
  - Melaena [Unknown]
  - Vomiting [Unknown]
  - Death [Fatal]
  - Pneumonia [Unknown]

NARRATIVE: CASE EVENT DATE: 20191106
